FAERS Safety Report 13900731 (Version 3)
Quarter: 2017Q4

REPORT INFORMATION
  Report Type: Spontaneous
  Country: US (occurrence: US)
  Receive Date: 20170823
  Receipt Date: 20171009
  Transmission Date: 20180320
  Serious: Yes (Death, Hospitalization, Other)
  Sender: FDA-Public Use
  Company Number: US-MYLANLABS-2017M1052695

PATIENT
  Age: 22 Year
  Sex: Male

DRUGS (1)
  1. CLOZAPINE. [Suspect]
     Active Substance: CLOZAPINE
     Indication: SCHIZOPHRENIA
     Dosage: 300 MG, QD

REACTIONS (7)
  - Cardiac failure [Fatal]
  - Cardiogenic shock [Fatal]
  - Respiratory tract infection [Unknown]
  - Cardiomyopathy [Unknown]
  - Gastrointestinal hypermotility [Unknown]
  - Arthralgia [Unknown]
  - Gastroenteritis [Unknown]
